FAERS Safety Report 18286572 (Version 1)
Quarter: 2020Q3

REPORT INFORMATION
  Report Type: Spontaneous
  Country: KR (occurrence: KR)
  Receive Date: 20200920
  Receipt Date: 20200920
  Transmission Date: 20201103
  Serious: Yes (Other)
  Sender: FDA-Public Use
  Company Number: KR-ROCHE-2679466

PATIENT

DRUGS (10)
  1. HALAVEN [Concomitant]
     Active Substance: ERIBULIN MESYLATE
  2. XELODA [Suspect]
     Active Substance: CAPECITABINE
     Indication: METASTASES TO PLEURA
  3. ABRAXANE [Concomitant]
     Active Substance: PACLITAXEL
     Dates: start: 2019, end: 2019
  4. XELODA [Suspect]
     Active Substance: CAPECITABINE
     Indication: METASTASES TO BONE
  5. AFINITOR [Suspect]
     Active Substance: EVEROLIMUS
     Indication: METASTASES TO LUNG
  6. XELODA [Suspect]
     Active Substance: CAPECITABINE
     Indication: METASTASES TO LIVER
     Route: 065
     Dates: start: 2019, end: 2019
  7. AFINITOR [Suspect]
     Active Substance: EVEROLIMUS
     Indication: METASTASES TO LIVER
     Route: 065
     Dates: start: 2019
  8. XELODA [Suspect]
     Active Substance: CAPECITABINE
     Indication: METASTASES TO LUNG
  9. AFINITOR [Suspect]
     Active Substance: EVEROLIMUS
     Indication: METASTASES TO PLEURA
  10. AFINITOR [Suspect]
     Active Substance: EVEROLIMUS
     Indication: METASTASES TO BONE

REACTIONS (3)
  - Metastases to central nervous system [Recovering/Resolving]
  - Metastases to eye [Recovering/Resolving]
  - Liver disorder [Recovering/Resolving]

NARRATIVE: CASE EVENT DATE: 2019
